FAERS Safety Report 7934077-3 (Version None)
Quarter: 2011Q4

REPORT INFORMATION
  Report Type: 
  Country: None (occurrence: None)
  Receive Date: 20111122
  Receipt Date: 20111109
  Transmission Date: 20120403
  Serious: Yes (Death)
  Sender: FDA-Public Use
  Company Number: US-MYLANLABS-2011S1023514

PATIENT
  Age: 53 Year
  Sex: Male

DRUGS (2)
  1. DILTIAZEM HCL [Suspect]
     Indication: OVERDOSE
     Dosage: INGESTED ONE-MONTH SUPPLY OF DILTIAZEM 120MG SR
  2. PROPRANOLOL [Suspect]
     Indication: OVERDOSE
     Dosage: INGESTED ONE-MONTH SUPPLY OF PROPRANOLOL 20MG

REACTIONS (5)
  - CARDIOGENIC SHOCK [None]
  - MULTI-ORGAN FAILURE [None]
  - OVERDOSE [None]
  - HYPOTENSION [None]
  - BRADYCARDIA [None]
